FAERS Safety Report 7890550-8 (Version None)
Quarter: 2011Q4

REPORT INFORMATION
  Report Type: 
  Country: None (occurrence: None)
  Receive Date: 20111103
  Receipt Date: 20110720
  Transmission Date: 20120403
  Serious: No
  Sender: FDA-Public Use
  Company Number: US-AMGEN-USASP2011036979

PATIENT
  Age: 73 Year
  Sex: Female

DRUGS (2)
  1. ANTIBIOTIC                         /00011701/ [Concomitant]
     Dosage: UNK
  2. ENBREL [Suspect]
     Indication: RHEUMATOID ARTHRITIS
     Dosage: 50 MG, QWK
     Dates: start: 20101223

REACTIONS (6)
  - ASTHENIA [None]
  - WEIGHT INCREASED [None]
  - FATIGUE [None]
  - PAIN [None]
  - DENTAL IMPLANTATION [None]
  - ARTHRALGIA [None]
